FAERS Safety Report 8077792-6 (Version None)
Quarter: 2012Q1

REPORT INFORMATION
  Report Type: 
  Country: None (occurrence: None)
  Receive Date: 20120127
  Receipt Date: 20120116
  Transmission Date: 20120608
  Serious: Yes (Hospitalization, Other)
  Sender: FDA-Public Use
  Company Number: JP-PFIZER INC-2011314946

PATIENT
  Age: 47 Year
  Sex: Female

DRUGS (3)
  1. CELECOXIB [Suspect]
     Indication: RHEUMATOID ARTHRITIS
     Dosage: 50 MG, 2X/DAY
     Route: 048
     Dates: start: 20111108, end: 20111216
  2. EPINASTINE HYDROCHLORIDE [Suspect]
     Indication: EUSTACHIAN TUBE OBSTRUCTION
     Dosage: 20 MG, 1X/DAY
     Route: 048
     Dates: start: 20110601, end: 20111217
  3. AZULFIDINE [Suspect]
     Indication: RHEUMATOID ARTHRITIS
     Dosage: 250 MG, 2X/DAY
     Dates: start: 20111122, end: 20111217

REACTIONS (2)
  - LYMPHADENOPATHY [None]
  - TOXIC SKIN ERUPTION [None]
